FAERS Safety Report 19650952 (Version 3)
Quarter: 2021Q3

REPORT INFORMATION
  Report Type: Spontaneous
  Country: IT (occurrence: IT)
  Receive Date: 20210802
  Receipt Date: 20210817
  Transmission Date: 20211014
  Serious: Yes (Other)
  Sender: FDA-Public Use
  Company Number: IT-CELLTRION INC.-2021IT006789

PATIENT

DRUGS (12)
  1. RITUXIMAB (UNKNOWN) [Suspect]
     Active Substance: RITUXIMAB
     Indication: RHEUMATOID ARTHRITIS-ASSOCIATED INTERSTITIAL LUNG DISEASE
     Dosage: 1000 MG EVERY OTHER WEEK
     Route: 042
     Dates: start: 201712
  2. HYDROXYCHLOROQUINE SULFATE. [Suspect]
     Active Substance: HYDROXYCHLOROQUINE SULFATE
     Indication: INTERSTITIAL LUNG DISEASE
     Dosage: UNK
     Route: 065
     Dates: start: 201212
  3. OXYGEN. [Suspect]
     Active Substance: OXYGEN
     Indication: SUPPLEMENTATION THERAPY
     Dosage: UNK
     Route: 065
  4. METHYLPREDNISOLONE. [Suspect]
     Active Substance: METHYLPREDNISOLONE
     Dosage: 8 MG, QD
     Route: 065
  5. RITUXIMAB (UNKNOWN) [Suspect]
     Active Substance: RITUXIMAB
     Indication: INTERSTITIAL LUNG DISEASE
     Dosage: 1000 MG EVERY OTHER WEEK
     Route: 042
     Dates: start: 201712
  6. PREDNISONE. [Suspect]
     Active Substance: PREDNISONE
     Indication: INTERSTITIAL LUNG DISEASE
     Dosage: 5 MG, QD (LOW?DOSE))
     Route: 065
  7. METHYLPREDNISOLONE. [Suspect]
     Active Substance: METHYLPREDNISOLONE
     Indication: PRODUCT USED FOR UNKNOWN INDICATION
     Dosage: 2?8 MG, QD
  8. TOFACITINIB [Suspect]
     Active Substance: TOFACITINIB
     Indication: PRODUCT USED FOR UNKNOWN INDICATION
     Dosage: 5 MG, BID
     Route: 065
     Dates: start: 201803
  9. TOCILIZUMAB. [Suspect]
     Active Substance: TOCILIZUMAB
     Indication: RHEUMATOID ARTHRITIS
     Dosage: 162 MG, 1/WEEK (DOSAGE FORM: PRE?FILLED SYRINGE)
     Route: 058
     Dates: start: 201506, end: 201605
  10. RITUXIMAB (UNKNOWN) [Suspect]
     Active Substance: RITUXIMAB
     Indication: RHEUMATOID ARTHRITIS
     Dosage: 1000 MG, BIW (2 INFUSIONS), EVERY 2 WEEKS (1000 MG EVERY OTHER WEEK)
     Route: 042
     Dates: start: 201712, end: 201712
  11. HYDROXYCHLOROQUINE SULFATE. [Suspect]
     Active Substance: HYDROXYCHLOROQUINE SULFATE
     Indication: RHEUMATOID ARTHRITIS
     Dosage: 400 MG, DAILY
  12. HYDROXYCHLOROQUINE [Concomitant]
     Active Substance: HYDROXYCHLOROQUINE
     Dosage: UNK
     Dates: start: 201212

REACTIONS (6)
  - Off label use [Unknown]
  - Drug ineffective [Unknown]
  - Lower respiratory tract infection [Recovered/Resolved]
  - Upper respiratory tract infection [Recovered/Resolved]
  - Urinary tract infection [Recovered/Resolved]
  - Product use in unapproved indication [Unknown]
